FAERS Safety Report 13949524 (Version 1)
Quarter: 2017Q3

REPORT INFORMATION
  Report Type: Spontaneous
  Country: US (occurrence: US)
  Receive Date: 20170908
  Receipt Date: 20170908
  Transmission Date: 20171128
  Serious: No
  Sender: FDA-Public Use
  Company Number: US-GLAXOSMITHKLINE-US2017GSK138494

PATIENT
  Sex: Female

DRUGS (1)
  1. TANZEUM [Suspect]
     Active Substance: ALBIGLUTIDE
     Indication: DIABETES MELLITUS
     Dosage: UNK UNK, WE
     Route: 042
     Dates: start: 201708

REACTIONS (6)
  - Pancreatic disorder [Unknown]
  - Adverse drug reaction [Unknown]
  - Device difficult to use [Unknown]
  - Drug effect decreased [Unknown]
  - Blood insulin increased [Unknown]
  - Burning sensation [Unknown]
